FAERS Safety Report 7943368-1 (Version None)
Quarter: 2011Q4

REPORT INFORMATION
  Report Type: 
  Country: None (occurrence: None)
  Receive Date: 20111128
  Receipt Date: 20111117
  Transmission Date: 20120403
  Serious: No
  Sender: FDA-Public Use
  Company Number: CH-BAYER-201023578GPV

PATIENT
  Age: 23 Year
  Sex: Female

DRUGS (5)
  1. EXTAVIA [Suspect]
     Dosage: 0.062 MG, QOD
     Route: 058
  2. EXTAVIA [Suspect]
     Dosage: 0.25 MG, QOD
     Route: 058
     Dates: start: 20100405
  3. ORTHO TRI-CYCLEN [Concomitant]
  4. CLARITIN-D [Concomitant]
  5. EXTAVIA [Suspect]
     Indication: MULTIPLE SCLEROSIS
     Dosage: 0.5 MG, QOD
     Dates: start: 20100101

REACTIONS (5)
  - INJECTION SITE ERYTHEMA [None]
  - INJECTION SITE PRURITUS [None]
  - INSOMNIA [None]
  - ERYTHEMA [None]
  - INJECTION SITE REACTION [None]
